FAERS Safety Report 9147867 (Version 2)
Quarter: 2013Q3

REPORT INFORMATION
  Report Type: Spontaneous
  Country: US (occurrence: US)
  Receive Date: 20130307
  Receipt Date: 20130718
  Transmission Date: 20140515
  Serious: Yes (Other)
  Sender: FDA-Public Use
  Company Number: CHPA2013US003995

PATIENT
  Age: 44 Year
  Sex: Female

DRUGS (3)
  1. EXCEDRIN UNKNOWN [Suspect]
     Indication: HEADACHE
     Dosage: UNK, UNK
     Route: 048
  2. EXCEDRIN MIGRAINE [Suspect]
     Indication: MIGRAINE
     Dosage: 2 DF, BID PRN
     Route: 048
  3. EXCEDRIN MIGRAINE [Suspect]
     Indication: HEADACHE

REACTIONS (2)
  - Nerve injury [Not Recovered/Not Resolved]
  - Migraine [Unknown]
